FAERS Safety Report 12715738 (Version 3)
Quarter: 2016Q4

REPORT INFORMATION
  Report Type: Spontaneous
  Country: US (occurrence: US)
  Receive Date: 20160906
  Receipt Date: 20161012
  Transmission Date: 20170207
  Serious: Yes (Hospitalization)
  Sender: FDA-Public Use
  Company Number: US-PFIZER INC-2016413530

PATIENT
  Age: 60 Year
  Sex: Female
  Weight: 71.66 kg

DRUGS (1)
  1. SUTENT [Suspect]
     Active Substance: SUNITINIB MALATE
     Indication: RENAL CANCER
     Dosage: 50 MG, DAILY (DAILY FOR 14/DAYS Q 21 DAYS))
     Route: 048
     Dates: start: 20160718

REACTIONS (2)
  - Enzyme level increased [Unknown]
  - Diarrhoea [Unknown]
